FAERS Safety Report 7355683 (Version 4)
Quarter: 2014Q1

REPORT INFORMATION
  Report Type: Spontaneous
  Country: US (occurrence: US)
  Receive Date: 20100415
  Receipt Date: 20140121
  Transmission Date: 20141002
  Serious: Yes (Other)
  Sender: FDA-Public Use
  Company Number: US-BAYER-201019193NA

PATIENT
  Age: 30 Year
  Sex: Female
  Weight: 73.18 kg

DRUGS (5)
  1. YASMIN [Suspect]
     Indication: CONTRACEPTION
     Route: 048
     Dates: start: 20070308, end: 20090123
  2. ALBUTEROL SULFATE [Concomitant]
     Indication: WHEEZING
     Dosage: Q6H
     Route: 055
     Dates: start: 2007
  3. ALBUTEROL SULFATE [Concomitant]
     Indication: DYSPNOEA
  4. ALBUTEROL SULFATE [Concomitant]
     Indication: ASTHMA
  5. PROMETHAZINE [Concomitant]
     Indication: MULTIPLE ALLERGIES
     Route: 048
     Dates: start: 20080106, end: 20080206

REACTIONS (4)
  - Cholecystitis chronic [None]
  - Abdominal pain upper [None]
  - Gallbladder cholesterolosis [None]
  - Diarrhoea [Unknown]
